FAERS Safety Report 6108931-1 (Version None)
Quarter: 2009Q1

REPORT INFORMATION
  Report Type: 
  Country: None (occurrence: None)
  Receive Date: 20090306
  Receipt Date: 20090223
  Transmission Date: 20090719
  Serious: Yes (Death)
  Sender: FDA-Public Use
  Company Number: 1-17661261

PATIENT
  Age: 72 Year
  Sex: Male

DRUGS (10)
  1. WARFARIN SODIUM [Suspect]
     Dosage: ORAL
     Route: 048
  2. PROFILNINE [Suspect]
     Indication: ANTICOAGULANT THERAPY
     Dosage: 50 U/KG, ONCE, INTRAVENOUS
     Route: 042
  3. DESMOPRESSIN ACETATE [Suspect]
     Indication: ANTICOAGULANT THERAPY
     Dosage: 24 MCG, ONCE, INTRAVENOUS
     Route: 042
  4. GABAPENTIN [Concomitant]
  5. PRAVASTATIN [Concomitant]
  6. DIPYRIDAMOLE-ASA [Concomitant]
  7. OMEPRAZOLE [Concomitant]
  8. METOPROLOL TARTRATE [Concomitant]
  9. NIFEDIPINE [Concomitant]
  10. INSULIN [Concomitant]

REACTIONS (25)
  - ABDOMINAL DISTENSION [None]
  - ALANINE AMINOTRANSFERASE INCREASED [None]
  - ASPARTATE AMINOTRANSFERASE INCREASED [None]
  - BLOOD GLUCOSE DECREASED [None]
  - BLOOD GLUCOSE INCREASED [None]
  - BLOOD POTASSIUM INCREASED [None]
  - BRADYCARDIA [None]
  - BREATH SOUNDS ABNORMAL [None]
  - CARDIAC FAILURE [None]
  - CARDIAC TAMPONADE [None]
  - DECREASED APPETITE [None]
  - DEPRESSED LEVEL OF CONSCIOUSNESS [None]
  - DIARRHOEA [None]
  - ELECTROMECHANICAL DISSOCIATION [None]
  - FATIGUE [None]
  - HAEMODYNAMIC INSTABILITY [None]
  - HAEMOGLOBIN DECREASED [None]
  - HEART SOUNDS ABNORMAL [None]
  - HYPERCOAGULATION [None]
  - HYPERKALAEMIA [None]
  - INTERNATIONAL NORMALISED RATIO INCREASED [None]
  - INTRACARDIAC THROMBUS [None]
  - LEFT VENTRICULAR HYPERTROPHY [None]
  - PERICARDIAL EFFUSION [None]
  - SINUS BRADYCARDIA [None]
